FAERS Safety Report 4313773-3 (Version None)
Quarter: 2004Q1

REPORT INFORMATION
  Report Type: 
  Country: None (occurrence: None)
  Receive Date: 20040305
  Receipt Date: 20040224
  Transmission Date: 20041129
  Serious: Yes (Hospitalization, Other)
  Sender: FDA-Public Use
  Company Number: HQWYE269325NOV03

PATIENT
  Age: 61 Year
  Sex: Male
  Weight: 93.7 kg

DRUGS (3)
  1. RAPAMUNE [Suspect]
     Indication: PROPHYLAXIS AGAINST TRANSPLANT REJECTION
     Dosage: 4 MG 1X PER 1 DAY, ORAL
     Route: 048
     Dates: start: 20030819
  2. UNSPECIFIED ANTIHYPERTENSIVE AGENT (UNSPECIFIED ANTIHYPERTENSIVE AGENT [Concomitant]
  3. PROCRIT (ERYTHROPOIETIN) [Concomitant]

REACTIONS (3)
  - BRONCHITIS ACUTE [None]
  - HYPERTENSION [None]
  - IRON DEFICIENCY ANAEMIA [None]
